FAERS Safety Report 9344537 (Version 4)
Quarter: 2013Q4

REPORT INFORMATION
  Report Type: Report from Study
  Country: DE (occurrence: DE)
  Receive Date: 20130612
  Receipt Date: 20131202
  Transmission Date: 20140711
  Serious: Yes (Death, Life-Threatening, Hospitalization, Other)
  Sender: FDA-Public Use
  Company Number: DE-BAYER-2013-068615

PATIENT
  Age: 76 Year
  Sex: Female
  Weight: 57 kg

DRUGS (9)
  1. NEXAVAR [Suspect]
     Indication: RENAL CELL CARCINOMA
     Dosage: 400 MG, BID
     Route: 048
     Dates: start: 20130306
  2. NEXAVAR [Suspect]
     Indication: RENAL CELL CARCINOMA
     Dosage: UNK
     Dates: end: 20130603
  3. ENALAPRIL [Concomitant]
     Dosage: 2.5 MG, QD
     Dates: start: 2006
  4. KEPPRA [Concomitant]
     Dosage: 1000 MG, QD
     Dates: start: 2007
  5. ARLEVERT [Concomitant]
     Indication: VERTIGO
     Dosage: TOTAL DAILY DOSE 180 MG
     Dates: start: 2007
  6. GODAMED [Concomitant]
     Dosage: 50 MG, QD
     Dates: start: 2009
  7. NOVAMINSULFON [Concomitant]
     Indication: PAIN
     Dosage: TOTAL DAILY DOSE 1500 MG
     Dates: start: 20130312
  8. ASS [Concomitant]
     Dosage: 0.5 DF, QD
  9. ASS [Concomitant]
     Dosage: TOTAL DAILY DOSE 50 MG
     Dates: start: 20130602, end: 20130605

REACTIONS (8)
  - Convulsion [Fatal]
  - Haemorrhage intracranial [Fatal]
  - Constipation [Recovered/Resolved]
  - Erythema multiforme [Recovered/Resolved]
  - Epistaxis [Recovered/Resolved]
  - Rash pustular [Recovered/Resolved]
  - Alopecia [Not Recovered/Not Resolved]
  - Diarrhoea [Recovering/Resolving]
